FAERS Safety Report 8581955-0 (Version None)
Quarter: 2012Q3

REPORT INFORMATION
  Report Type: 
  Country: None (occurrence: None)
  Receive Date: 20120809
  Receipt Date: 20120801
  Transmission Date: 20120928
  Serious: Yes (Other)
  Sender: FDA-Public Use
  Company Number: US-BAYER-2012-076757

PATIENT
  Age: 76 Year
  Sex: Female
  Weight: 68.934 kg

DRUGS (1)
  1. NEXAVAR [Suspect]
     Indication: RENAL CELL CARCINOMA
     Dosage: 200 MG, BID
     Route: 048
     Dates: start: 20120728

REACTIONS (3)
  - APHAGIA [None]
  - NAUSEA [None]
  - VOMITING [None]
